FAERS Safety Report 4804109-X (Version None)
Quarter: 2005Q4

REPORT INFORMATION
  Report Type: 
  Country: None (occurrence: None)
  Receive Date: 20051014
  Receipt Date: 20051007
  Transmission Date: 20060501
  Serious: Yes (Death)
  Sender: FDA-Public Use
  Company Number: AZAUS200500299

PATIENT
  Age: 78 Year
  Sex: Male
  Weight: 81.1939 kg

DRUGS (2)
  1. VIDAZA [Suspect]
     Indication: MYELODYSPLASTIC SYNDROME
     Dosage: 75 MG/M2 (156 MG), SUBCUTANEOUS
     Route: 058
     Dates: start: 20050425, end: 20050429
  2. ANZEMET                            (DOLASETRON MESILATE) [Concomitant]

REACTIONS (5)
  - AORTIC CALCIFICATION [None]
  - AORTIC VALVE STENOSIS [None]
  - CARDIAC FAILURE CONGESTIVE [None]
  - CORONARY ARTERY DISEASE [None]
  - VENTRICULAR DYSFUNCTION [None]
